FAERS Safety Report 6450882-7 (Version None)
Quarter: 2009Q4

REPORT INFORMATION
  Report Type: 
  Country: None (occurrence: None)
  Receive Date: 20091123
  Receipt Date: 20091110
  Transmission Date: 20100525
  Serious: Yes (Hospitalization)
  Sender: FDA-Public Use
  Company Number: DE-PFIZER INC-2009295347

PATIENT
  Age: 66 Year
  Sex: Female

DRUGS (18)
  1. ZOLOFT [Interacting]
     Indication: DEPRESSION
     Dosage: 50 MG, 1X/DAY
     Route: 048
     Dates: start: 20090326, end: 20090407
  2. ZOLOFT [Interacting]
     Dosage: 100 MG, 1X/DAY
     Route: 048
     Dates: start: 20090408, end: 20090423
  3. ZOLOFT [Interacting]
     Dosage: 150 MG, 1X/DAY
     Dates: start: 20090424, end: 20090426
  4. ZOLOFT [Interacting]
     Dosage: 200 MG, 1X/DAY
     Dates: start: 20090427, end: 20090511
  5. ZOLOFT [Interacting]
     Dosage: 250 MG, 1X/DAY
     Dates: start: 20090612, end: 20090612
  6. ZOLOFT [Interacting]
     Dosage: 150 MG, 1X/DAY
     Dates: start: 20090621
  7. METOPROLOL TARTRATE [Interacting]
     Dosage: UNK
     Route: 048
  8. ERGENYL CHRONO [Interacting]
     Dosage: UNK
     Route: 048
     Dates: start: 20020101, end: 20060101
  9. ERGENYL CHRONO [Interacting]
     Dosage: UNK
     Route: 048
     Dates: start: 20060101, end: 20090617
  10. ERGENYL CHRONO [Interacting]
     Dosage: UNK
     Dates: start: 20090618, end: 20090621
  11. REMERGIL [Suspect]
     Dosage: UNK
     Route: 048
     Dates: end: 20090415
  12. REMERGIL [Suspect]
     Dosage: UNK
     Route: 048
     Dates: start: 20090416, end: 20090617
  13. MARCUMAR [Concomitant]
     Dosage: UNK
     Route: 048
     Dates: start: 20020101
  14. AMLODIPINE [Concomitant]
     Dosage: UNK
     Route: 048
  15. L-THYROXIN [Concomitant]
     Dosage: UNK
     Route: 048
  16. LASIX [Concomitant]
     Dosage: UNK
     Route: 048
  17. ASPIRIN [Concomitant]
     Dosage: UNK
     Route: 048
  18. BENALAPRIL [Concomitant]
     Dosage: UNK
     Route: 048

REACTIONS (3)
  - DRUG INTERACTION [None]
  - GAMMA-GLUTAMYLTRANSFERASE INCREASED [None]
  - TRANSAMINASES INCREASED [None]
